FAERS Safety Report 4938491-X (Version None)
Quarter: 2006Q1

REPORT INFORMATION
  Report Type: 
  Country: None (occurrence: None)
  Receive Date: 20060302
  Receipt Date: 20060208
  Transmission Date: 20060701
  Serious: Yes (Death, Other)
  Sender: FDA-Public Use
  Company Number: JP200602002012

PATIENT
  Age: 62 Year
  Sex: Male
  Weight: 47 kg

DRUGS (2)
  1. GEMZAR [Suspect]
     Indication: METASTASES TO LUNG
     Dosage: SEE IMAGE
     Route: 042
     Dates: start: 20040201
  2. CISPLATIN [Concomitant]

REACTIONS (8)
  - CARCINOEMBRYONIC ANTIGEN INCREASED [None]
  - DECREASED APPETITE [None]
  - GASTROINTESTINAL TOXICITY [None]
  - MALAISE [None]
  - MALIGNANT NEOPLASM PROGRESSION [None]
  - MALIGNANT PLEURAL EFFUSION [None]
  - NAUSEA [None]
  - PERFORMANCE STATUS DECREASED [None]
